FAERS Safety Report 6769510-6 (Version None)
Quarter: 2010Q2

REPORT INFORMATION
  Report Type: 
  Country: None (occurrence: None)
  Receive Date: 20100608
  Receipt Date: 20100601
  Transmission Date: 20101027
  Serious: Yes (Death)
  Sender: FDA-Public Use
  Company Number: B0658935A

PATIENT
  Sex: 0

DRUGS (2)
  1. TOPOTECAN HYDROCHLORIDE [Suspect]
     Indication: SMALL CELL LUNG CANCER STAGE UNSPECIFIED
     Dosage: .75 MG/M2 / CYCLIC
  2. AMRUBICIN HYDROCHLORIDE (FORMULATION UNKNOWN) (AMRUBICIN HYDROCHLORIDE [Suspect]
     Indication: SMALL CELL LUNG CANCER STAGE UNSPECIFIED
     Dosage: 35 MG/M2 / CYCLIC

REACTIONS (1)
  - DIARRHOEA [None]
